FAERS Safety Report 7416433-5 (Version None)
Quarter: 2011Q2

REPORT INFORMATION
  Report Type: 
  Country: None (occurrence: None)
  Receive Date: 20110414
  Receipt Date: 20110411
  Transmission Date: 20111010
  Serious: Yes (Other)
  Sender: FDA-Public Use
  Company Number: US-AMGEN-QUU434338

PATIENT
  Age: 68 Year
  Sex: Male
  Weight: 89.9 kg

DRUGS (1)
  1. NPLATE [Suspect]
     Indication: IDIOPATHIC THROMBOCYTOPENIC PURPURA
     Dosage: 188 A?G, UNK
     Dates: start: 20100413, end: 20100504

REACTIONS (2)
  - OEDEMA PERIPHERAL [None]
  - THROMBOCYTOPENIA [None]
